FAERS Safety Report 11462117 (Version 1)
Quarter: 2015Q3

REPORT INFORMATION
  Report Type: Spontaneous
  Country: US (occurrence: US)
  Receive Date: 20150831
  Receipt Date: 20150831
  Transmission Date: 20151125
  Serious: No
  Sender: FDA-Public Use
  Company Number: US-ELI_LILLY_AND_COMPANY-US201010000786

PATIENT
  Age: 46 Year
  Sex: Male

DRUGS (6)
  1. SUBOXONE [Concomitant]
     Active Substance: BUPRENORPHINE HYDROCHLORIDE\NALOXONE HYDROCHLORIDE
     Dosage: 34 MG, UNK
  2. SUPER B COMPLEX [Concomitant]
     Active Substance: CYANOCOBALAMIN\DEXPANTHENOL\NIACINAMIDE\PYRIDOXINE HYDROCHLORIDE\RIBOFLAVIN 5^-PHOSPHATE SODIUM\THIAMINE HYDROCHLORIDE\VITAMIN B COMPLEX
  3. CYMBALTA [Suspect]
     Active Substance: DULOXETINE HYDROCHLORIDE
     Indication: FIBROMYALGIA
     Dosage: 60 MG, DAILY (1/D)
  4. SUBOXONE [Concomitant]
     Active Substance: BUPRENORPHINE HYDROCHLORIDE\NALOXONE HYDROCHLORIDE
     Dosage: 1 MG, UNK
  5. LYRICA [Concomitant]
     Active Substance: PREGABALIN
  6. SIMVASTATIN. [Concomitant]
     Active Substance: SIMVASTATIN

REACTIONS (10)
  - Neuropathy peripheral [Not Recovered/Not Resolved]
  - Aggression [Recovered/Resolved]
  - Anaemia [Unknown]
  - Frustration [Recovered/Resolved]
  - Hyperhidrosis [Recovering/Resolving]
  - Influenza like illness [Recovered/Resolved]
  - Hypersomnia [Recovering/Resolving]
  - Pain in extremity [Unknown]
  - Feeling jittery [Recovered/Resolved]
  - Insomnia [Recovering/Resolving]
